FAERS Safety Report 10029135 (Version 1)
Quarter: 2014Q1

REPORT INFORMATION
  Report Type: Report from Study
  Country: US (occurrence: US)
  Receive Date: 20140321
  Receipt Date: 20140321
  Transmission Date: 20141002
  Serious: Yes (Hospitalization)
  Sender: FDA-Public Use
  Company Number: US-ABBVIE-14P-163-1213562-00

PATIENT
  Age: 47 Year
  Sex: Female
  Weight: 58.57 kg

DRUGS (1)
  1. HUMIRA [Suspect]
     Indication: CROHN^S DISEASE
     Dates: start: 201309, end: 201310

REACTIONS (2)
  - Colitis [Recovered/Resolved]
  - Abdominal distension [Recovered/Resolved]
